FAERS Safety Report 9198651 (Version 2)
Quarter: 2013Q4

REPORT INFORMATION
  Report Type: Report from Study
  Country: CA (occurrence: CA)
  Receive Date: 20130329
  Receipt Date: 20131108
  Transmission Date: 20140711
  Serious: Yes (Other)
  Sender: FDA-Public Use
  Company Number: CA-JNJFOC-20130314991

PATIENT
  Age: 36 Year
  Sex: Male
  Weight: 33.57 kg

DRUGS (1)
  1. REMICADE [Suspect]
     Indication: PSORIASIS
     Route: 042
     Dates: start: 200911, end: 201302

REACTIONS (1)
  - Hodgkin^s disease [Recovered/Resolved]
